FAERS Safety Report 20631279 (Version 1)
Quarter: 2022Q1

REPORT INFORMATION
  Report Type: Spontaneous
  Country: US (occurrence: None)
  Receive Date: 20220323
  Receipt Date: 20220323
  Transmission Date: 20220424
  Serious: No
  Sender: FDA-Public Use
  Company Number: None

PATIENT
  Age: 59 Year
  Sex: Female
  Weight: 69.85 kg

DRUGS (1)
  1. FORTEO [Suspect]
     Active Substance: TERIPARATIDE
     Indication: Senile osteoporosis
     Dosage: 600MCG/2.4ML? INJECT 20MCG  SUBCUTANEOUSLY DAILY AS DIRECTED? ?
     Route: 058
     Dates: start: 202006

REACTIONS (2)
  - Cerebral haemorrhage [None]
  - Therapy interrupted [None]
